FAERS Safety Report 24446950 (Version 1)
Quarter: 2024Q4

REPORT INFORMATION
  Report Type: Spontaneous
  Country: US (occurrence: US)
  Receive Date: 20241016
  Receipt Date: 20241016
  Transmission Date: 20250115
  Serious: No
  Sender: NOVO NORDISK
  Company Number: US-NOVOPROD-1172910

PATIENT
  Age: 10 Year
  Sex: Female

DRUGS (1)
  1. SOGROYA [Suspect]
     Active Substance: SOMAPACITAN\SOMAPACITAN-BECO
     Indication: Growth hormone deficiency
     Dosage: 5.5 MG, QW
     Route: 058
     Dates: start: 202311, end: 20240130

REACTIONS (6)
  - Ocular discomfort [Not Recovered/Not Resolved]
  - Vision blurred [Recovered/Resolved]
  - Head discomfort [Recovered/Resolved]
  - Eye pain [Unknown]
  - Pain in extremity [Not Recovered/Not Resolved]
  - Headache [Recovered/Resolved]

NARRATIVE: CASE EVENT DATE: 20240130
